FAERS Safety Report 18869448 (Version 1)
Quarter: 2021Q1

REPORT INFORMATION
  Report Type: Spontaneous
  Country: US (occurrence: US)
  Receive Date: 20210210
  Receipt Date: 20210210
  Transmission Date: 20210420
  Serious: No
  Sender: FDA-Public Use
  Company Number: US-TEVA-2021-US-1875220

PATIENT
  Age: 56 Year
  Sex: Male
  Weight: 112.49 kg

DRUGS (2)
  1. GENERIC EFFEXOR XR TEVA [Suspect]
     Active Substance: VENLAFAXINE HYDROCHLORIDE
     Indication: DEPRESSION
     Dosage: 300 MILLIGRAM DAILY;
     Route: 048
  2. EFFEXOR XR [Concomitant]
     Active Substance: VENLAFAXINE HYDROCHLORIDE
     Indication: DEPRESSION
     Dosage: 150MG, 2 CAPSULES BY MOUTH IN THE MORNING
     Route: 065
     Dates: start: 2000

REACTIONS (2)
  - Dizziness [Unknown]
  - Impaired driving ability [Unknown]
